FAERS Safety Report 11043988 (Version 1)
Quarter: 2015Q2

REPORT INFORMATION
  Report Type: Spontaneous
  Country: US (occurrence: US)
  Receive Date: 20150417
  Receipt Date: 20150417
  Transmission Date: 20150821
  Serious: Yes (Other)
  Sender: FDA-Public Use
  Company Number: US-PFIZER INC-2015127663

PATIENT
  Sex: Male

DRUGS (2)
  1. VIAGRA [Suspect]
     Active Substance: SILDENAFIL CITRATE
     Dosage: 100 MG, DAILY
     Route: 048
     Dates: start: 20150409
  2. VIAGRA [Suspect]
     Active Substance: SILDENAFIL CITRATE
     Dosage: 6 DF, SINGLE
     Dates: start: 20150409, end: 20150409

REACTIONS (4)
  - Semen volume increased [Recovering/Resolving]
  - Erection increased [Not Recovered/Not Resolved]
  - Intentional product misuse [Not Recovered/Not Resolved]
  - Testicular swelling [Recovering/Resolving]

NARRATIVE: CASE EVENT DATE: 20150409
